FAERS Safety Report 14845052 (Version 2)
Quarter: 2018Q2

REPORT INFORMATION
  Report Type: Spontaneous
  Country: FI (occurrence: FI)
  Receive Date: 20180504
  Receipt Date: 20180620
  Transmission Date: 20180711
  Serious: Yes (Other)
  Sender: FDA-Public Use
  Company Number: FI-REGENERON PHARMACEUTICALS, INC.-2018-22663

PATIENT

DRUGS (3)
  1. EYLEA [Suspect]
     Active Substance: AFLIBERCEPT
     Indication: NEOVASCULAR AGE-RELATED MACULAR DEGENERATION
     Dosage: EYLEA 3X ON BOTH EYES, UNSPECIFIED DATES
     Dates: start: 201505
  2. EYLEA [Suspect]
     Active Substance: AFLIBERCEPT
     Dosage: EYLEA 3X, UNSPECIFIED DATES
     Dates: start: 201508
  3. EYLEA [Suspect]
     Active Substance: AFLIBERCEPT
     Dosage: EYLEA 2X ON THE LEFT EYEN UNSPECIFIED DATES
     Dates: start: 201606

REACTIONS (1)
  - Macular oedema [Recovered/Resolved]

NARRATIVE: CASE EVENT DATE: 201508
